FAERS Safety Report 5430269-6 (Version None)
Quarter: 2007Q3

REPORT INFORMATION
  Report Type: 
  Country: None (occurrence: None)
  Receive Date: 20070731
  Receipt Date: 20070416
  Transmission Date: 20080115
  Serious: No
  Sender: FDA-Public Use
  Company Number: US200704003684

PATIENT
  Age: 72 Year
  Sex: Male
  Weight: 122.4 kg

DRUGS (7)
  1. BYETTA [Suspect]
     Indication: TYPE 2 DIABETES MELLITUS
     Dosage: 5 UG, 2/D, SUBCUTANEOUS
     Route: 058
     Dates: start: 20070301
  2. GLIPIZIDE [Concomitant]
  3. METFORMIN HCL [Concomitant]
  4. WARFARIN SODIUM [Concomitant]
  5. PLAVIX [Concomitant]
  6. ASPIRIN [Concomitant]
  7. WATER PILLS (AMMONIUM CHLORIDE, CAFFEINE) [Concomitant]

REACTIONS (3)
  - BLOOD GLUCOSE INCREASED [None]
  - DECREASED APPETITE [None]
  - INJECTION SITE BRUISING [None]
